FAERS Safety Report 7286633-6 (Version None)
Quarter: 2011Q1

REPORT INFORMATION
  Report Type: 
  Country: None (occurrence: None)
  Receive Date: 20110210
  Receipt Date: 20110131
  Transmission Date: 20110831
  Serious: Yes (Other)
  Sender: FDA-Public Use
  Company Number: US-CELGENEUS-163-20785-11020475

PATIENT
  Sex: Male

DRUGS (12)
  1. ETOPOSIDE [Suspect]
     Indication: MULTIPLE MYELOMA
     Route: 065
     Dates: start: 20101101
  2. PEPCID [Concomitant]
     Route: 065
  3. THALOMID [Suspect]
     Route: 048
     Dates: start: 20110101
  4. CISPLATIN [Suspect]
     Indication: MULTIPLE MYELOMA
     Route: 065
     Dates: start: 20101101
  5. ALLOPURINOL [Concomitant]
     Indication: MULTIPLE MYELOMA
     Route: 065
     Dates: start: 20101101
  6. FENTANYL [Concomitant]
     Indication: PAIN
     Route: 061
     Dates: start: 20101101
  7. ACYCLOVIR [Concomitant]
     Indication: ANTIVIRAL PROPHYLAXIS
     Route: 065
     Dates: start: 20101101
  8. THALOMID [Suspect]
     Indication: MULTIPLE MYELOMA
     Route: 048
     Dates: start: 20101101
  9. THALOMID [Suspect]
     Route: 048
     Dates: start: 20110101
  10. ADRIAMYCIN PFS [Suspect]
     Indication: MULTIPLE MYELOMA
     Route: 065
     Dates: start: 20101101
  11. CYTOXAN [Suspect]
     Indication: MULTIPLE MYELOMA
     Route: 065
     Dates: start: 20101101
  12. VELCADE [Concomitant]
     Indication: MULTIPLE MYELOMA
     Route: 065
     Dates: start: 20101101

REACTIONS (1)
  - BONE MARROW FAILURE [None]
